FAERS Safety Report 21996126 (Version 1)
Quarter: 2023Q1

REPORT INFORMATION
  Report Type: Report from Study
  Country: CA (occurrence: CA)
  Receive Date: 20230215
  Receipt Date: 20230215
  Transmission Date: 20230418
  Serious: Yes (Other)
  Sender: FDA-Public Use
  Company Number: CA-TAKEDA-2023TUS014708

PATIENT
  Age: 59 Year
  Sex: Female

DRUGS (3)
  1. VEDOLIZUMAB [Suspect]
     Active Substance: VEDOLIZUMAB
     Indication: Colitis ulcerative
     Dosage: 300 MILLIGRAM
     Route: 042
     Dates: start: 20170422
  2. PENTASA [Concomitant]
     Active Substance: MESALAMINE
     Dosage: UNK
     Dates: start: 20170320
  3. Cortiment [Concomitant]
     Dosage: UNK

REACTIONS (8)
  - Colitis ulcerative [Unknown]
  - Poor venous access [Unknown]
  - Catheter site injury [Unknown]
  - Colorectal adenoma [Unknown]
  - Magnetic resonance imaging abnormal [Unknown]
  - Paraesthesia [Unknown]
  - Headache [Unknown]
  - Abdominal distension [Unknown]

NARRATIVE: CASE EVENT DATE: 20230207
